FAERS Safety Report 8733674 (Version 3)
Quarter: 2012Q4

REPORT INFORMATION
  Report Type: 
  Country: US (occurrence: US)
  Receive Date: 20120821
  Receipt Date: 20121015
  Transmission Date: 20130627
  Serious: Yes (Hospitalization, Other)
  Sender: FDA-Public Use
  Company Number: PHHY2011US51403

PATIENT
  Age: 76 Year
  Sex: Female
  Weight: 66.44 kg

DRUGS (6)
  1. GLEEVEC [Suspect]
     Indication: CHRONIC MYELOID LEUKAEMIA
     Dosage: 400 mg, daily
     Route: 048
     Dates: start: 20110517
  2. GLEEVEC [Suspect]
     Dosage: 400 mg, daily
     Route: 048
  3. GLEEVEC [Suspect]
     Dosage: 400 mg, daily
     Route: 048
     Dates: start: 20110830
  4. GLEEVEC [Suspect]
     Dosage: 100 mg, per day
  5. GLEEVEC [Suspect]
     Dosage: 400 mg, daily
     Route: 048
  6. DIGOXIN [Concomitant]

REACTIONS (20)
  - Laboratory test abnormal [Unknown]
  - Nausea [Recovering/Resolving]
  - Vomiting [Recovered/Resolved]
  - Diarrhoea [Unknown]
  - Pyrexia [Recovered/Resolved]
  - Coronary artery disease [Unknown]
  - Anaemia [Not Recovered/Not Resolved]
  - Blood iron decreased [Not Recovered/Not Resolved]
  - Atrial fibrillation [Unknown]
  - Cardiac failure congestive [Unknown]
  - Pneumonia [Unknown]
  - Chest pain [Recovered/Resolved]
  - Myocardial infarction [Unknown]
  - Ocular hyperaemia [Not Recovered/Not Resolved]
  - Asthenopia [Not Recovered/Not Resolved]
  - Lacrimation increased [Unknown]
  - Periorbital oedema [Not Recovered/Not Resolved]
  - Vision blurred [Unknown]
  - White blood cell count decreased [Unknown]
  - Respiratory distress [Recovered/Resolved]
